FAERS Safety Report 8406895-9 (Version None)
Quarter: 2012Q2

REPORT INFORMATION
  Report Type: 
  Country: None (occurrence: None)
  Receive Date: 20120604
  Receipt Date: 20120524
  Transmission Date: 20120825
  Serious: Yes (Life-Threatening)
  Sender: FDA-Public Use
  Company Number: JP-ASTRAZENECA-2012SE31391

PATIENT
  Sex: Male
  Weight: 61 kg

DRUGS (8)
  1. LIVALO [Suspect]
     Indication: DYSLIPIDAEMIA
     Route: 048
     Dates: end: 20120418
  2. CANDESARTAN CILEXETIL [Suspect]
     Indication: HYPERTENSION
     Route: 048
     Dates: end: 20120418
  3. COTRIM [Suspect]
     Indication: FUNGAL INFECTION
     Route: 048
     Dates: start: 20120308, end: 20120418
  4. ATELEC [Suspect]
     Indication: HYPERTENSION
     Route: 048
     Dates: end: 20120418
  5. PREDNISOLONE [Suspect]
     Indication: IGA NEPHROPATHY
     Route: 048
     Dates: start: 20120308
  6. LANSOPRAZOLE [Suspect]
     Indication: PEPTIC ULCER
     Route: 048
     Dates: start: 20120308, end: 20120418
  7. ONEALFA [Suspect]
     Indication: OSTEOPOROSIS PROPHYLAXIS
     Route: 048
     Dates: start: 20120308, end: 20120418
  8. FEBURIC [Suspect]
     Indication: HYPERURICAEMIA
     Route: 048
     Dates: start: 20120126, end: 20120418

REACTIONS (2)
  - SEPTIC SHOCK [None]
  - AGRANULOCYTOSIS [None]
